FAERS Safety Report 6558454-0 (Version None)
Quarter: 2010Q1

REPORT INFORMATION
  Report Type: 
  Country: None (occurrence: None)
  Receive Date: 20100128
  Receipt Date: 20100128
  Transmission Date: 20100710
  Serious: Yes (Other)
  Sender: FDA-Public Use
  Company Number: None

PATIENT
  Age: 59 Year
  Sex: Male
  Weight: 71.6683 kg

DRUGS (1)
  1. DEPAKOTE [Suspect]
     Indication: SIMPLE PARTIAL SEIZURES
     Dosage: 250 MG 4 X DAILY PO
     Route: 048
     Dates: start: 19930301, end: 20091118

REACTIONS (1)
  - OSTEOPOROSIS [None]
